FAERS Safety Report 12899457 (Version 2)
Quarter: 2016Q4

REPORT INFORMATION
  Report Type: Spontaneous
  Country: US (occurrence: US)
  Receive Date: 20161101
  Receipt Date: 20161212
  Transmission Date: 20170207
  Serious: Yes (Hospitalization)
  Sender: FDA-Public Use
  Company Number: US-BAYER-2016-207495

PATIENT
  Age: 17 Year
  Sex: Female
  Weight: 64.5 kg

DRUGS (1)
  1. ACETYLSALICYLIC ACID (} 100 MG) [Suspect]
     Active Substance: ASPIRIN
     Dosage: 325MG

REACTIONS (5)
  - Overdose [None]
  - Toxicity to various agents [None]
  - Vomiting [None]
  - Tinnitus [None]
  - Anaemia [None]
